FAERS Safety Report 6289280-8 (Version None)
Quarter: 2009Q3

REPORT INFORMATION
  Report Type: 
  Country: None (occurrence: None)
  Receive Date: 20090730
  Receipt Date: 20090724
  Transmission Date: 20100115
  Serious: Yes (Hospitalization)
  Sender: FDA-Public Use
  Company Number: US-BIOGENIDEC-2009BI013863

PATIENT
  Age: 66 Year
  Sex: Female

DRUGS (4)
  1. TYSABRI [Suspect]
     Indication: MULTIPLE SCLEROSIS
     Route: 042
  2. TYSABRI [Suspect]
     Route: 042
     Dates: start: 20060830
  3. ZANAFLEX [Concomitant]
  4. PANTOPRAZOLE SODIUM [Concomitant]

REACTIONS (5)
  - ANAEMIA [None]
  - PNEUMONIA [None]
  - PULMONARY NECROSIS [None]
  - PYOTHORAX [None]
  - WHITE BLOOD CELL COUNT INCREASED [None]
